FAERS Safety Report 5167280-9 (Version None)
Quarter: 2006Q4

REPORT INFORMATION
  Report Type: 
  Country: None (occurrence: None)
  Receive Date: 20061124
  Receipt Date: 20061117
  Transmission Date: 20070319
  Serious: Yes (Other)
  Sender: FDA-Public Use
  Company Number: 2006144814

PATIENT
  Age: 57 Year
  Sex: Female
  Weight: 113.3993 kg

DRUGS (6)
  1. CELEBREX [Suspect]
     Indication: BURSITIS
     Dates: start: 20060101
  2. HYDROCHLOROTHIAZIDE [Concomitant]
  3. TOPROL-XL [Concomitant]
  4. ACETYLSALICYLIC ACID SRT [Concomitant]
  5. GLUCOSAMINE [Concomitant]
  6. VITAMINS [Concomitant]

REACTIONS (7)
  - BLISTER [None]
  - FALL [None]
  - OEDEMA PERIPHERAL [None]
  - PRURITUS [None]
  - SECRETION DISCHARGE [None]
  - UPPER LIMB FRACTURE [None]
  - URTICARIA [None]
